FAERS Safety Report 9552774 (Version 1)
Quarter: 2013Q3

REPORT INFORMATION
  Report Type: Spontaneous
  Country: US (occurrence: None)
  Receive Date: 20130724
  Receipt Date: 20130724
  Transmission Date: 20140515
  Serious: Yes (Other)
  Sender: FDA-Public Use
  Company Number: PHEH2012US016760

PATIENT
  Sex: Female

DRUGS (1)
  1. RECLAST [Suspect]
     Dosage: 5 MG, ANNUAL, INTRAVENOUS
     Route: 042

REACTIONS (3)
  - Atrial fibrillation [None]
  - Pain [None]
  - Influenza like illness [None]
